FAERS Safety Report 7525571-8 (Version None)
Quarter: 2011Q2

REPORT INFORMATION
  Report Type: 
  Country: None (occurrence: None)
  Receive Date: 20110526
  Receipt Date: 20110513
  Transmission Date: 20111010
  Serious: Yes (Hospitalization, Other)
  Sender: FDA-Public Use
  Company Number: 2011MA005878

PATIENT
  Age: 3 Month
  Sex: Male

DRUGS (1)
  1. CLOBETASOL PROPIONATE [Suspect]
     Indication: DERMATITIS DIAPER
     Dosage: BID

REACTIONS (6)
  - HYPERCHOLESTEROLAEMIA [None]
  - HYPERTRIGLYCERIDAEMIA [None]
  - URINARY TRACT INFECTION ENTEROCOCCAL [None]
  - LOW DENSITY LIPOPROTEIN INCREASED [None]
  - CUSHING'S SYNDROME [None]
  - HEPATIC ENZYME INCREASED [None]
